FAERS Safety Report 8577014-3 (Version None)
Quarter: 2012Q3

REPORT INFORMATION
  Report Type: 
  Country: None (occurrence: None)
  Receive Date: 20120807
  Receipt Date: 20120723
  Transmission Date: 20120928
  Serious: Yes (Hospitalization)
  Sender: FDA-Public Use
  Company Number: CA-WATSON-2012-13658

PATIENT
  Age: 39 Year
  Sex: Male

DRUGS (9)
  1. ALCOHOL [Suspect]
     Indication: DRUG ABUSE
     Route: 048
  2. FENTANYL-100 [Suspect]
     Indication: PAIN
  3. MORPHINE SULFATE [Suspect]
     Indication: PAIN
  4. MORPHINE SULFATE [Suspect]
     Indication: DRUG ABUSE
     Route: 065
  5. FENTANYL-100 [Suspect]
     Indication: DRUG ABUSE
     Route: 065
  6. MEPERIDINE HCL [Suspect]
     Indication: PAIN
  7. OXYCODONE HCL [Suspect]
     Indication: DRUG ABUSE
     Dosage: 175 MG, DAILY
     Route: 048
  8. MEPERIDINE HCL [Suspect]
     Indication: DRUG ABUSE
  9. OXYCODONE HCL [Suspect]
     Indication: PAIN

REACTIONS (3)
  - DRUG DEPENDENCE [None]
  - DRUG WITHDRAWAL SYNDROME [None]
  - PSYCHOTIC DISORDER [None]
